FAERS Safety Report 6511339-8 (Version None)
Quarter: 2009Q4

REPORT INFORMATION
  Report Type: 
  Country: None (occurrence: None)
  Receive Date: 20091222
  Receipt Date: 20090303
  Transmission Date: 20100525
  Serious: No
  Sender: FDA-Public Use
  Company Number: US-ASTRAZENECA-2009UW05670

PATIENT
  Age: 54 Year
  Sex: Female

DRUGS (5)
  1. CRESTOR [Suspect]
     Indication: HYPERLIPIDAEMIA
     Dosage: 40 MG
     Route: 048
  2. QUESTRAN [Concomitant]
  3. ZETIA [Concomitant]
  4. TEGRETOL [Concomitant]
  5. NIASPAN [Concomitant]

REACTIONS (3)
  - DISCOMFORT [None]
  - FLUSHING [None]
  - PARAESTHESIA [None]
